FAERS Safety Report 6165882-4 (Version None)
Quarter: 2009Q2

REPORT INFORMATION
  Report Type: 
  Country: None (occurrence: None)
  Receive Date: 20090423
  Receipt Date: 20090414
  Transmission Date: 20091009
  Serious: Yes (Other)
  Sender: FDA-Public Use
  Company Number: JP-MERCK-0904USA02866

PATIENT
  Age: 11 Year
  Sex: Male
  Weight: 36 kg

DRUGS (5)
  1. PEPCID [Suspect]
     Route: 048
  2. ASPIRIN [Concomitant]
     Route: 048
  3. GLOBULIN, IMMUNE [Concomitant]
     Route: 051
  4. PREDNISOLONE [Concomitant]
     Route: 048
  5. PEPCID [Suspect]
     Route: 042

REACTIONS (2)
  - CARDIAC ANEURYSM [None]
  - DUODENAL ULCER [None]
